FAERS Safety Report 20629203 (Version 1)
Quarter: 2022Q1

REPORT INFORMATION
  Report Type: Spontaneous
  Country: ES (occurrence: None)
  Receive Date: 20220323
  Receipt Date: 20220323
  Transmission Date: 20220423
  Serious: Yes (Death, Hospitalization)
  Sender: FDA-Public Use
  Company Number: 2022A118004

PATIENT
  Age: 76 Year
  Sex: Female
  Weight: 74 kg

DRUGS (20)
  1. DAPAGLIFLOZIN [Suspect]
     Active Substance: DAPAGLIFLOZIN
     Indication: Cardiac failure
     Dosage: 1 TABLET EVERY DAY
     Route: 065
     Dates: start: 20200522
  2. ENTRESTO [Suspect]
     Active Substance: SACUBITRIL\VALSARTAN
     Indication: Cardiac failure chronic
     Dosage: 49 MG/51 MG, 1 TABLET EVERY 12 HOURS
     Route: 065
     Dates: start: 20190812, end: 20200611
  3. ENTRESTO [Suspect]
     Active Substance: SACUBITRIL\VALSARTAN
     Dosage: 97 MG/103 MG, 1 TABLET EVERY 12 HOURS
     Route: 048
     Dates: start: 20200611
  4. LEVOTHYROXINE SODIUM [Concomitant]
     Active Substance: LEVOTHYROXINE SODIUM
     Indication: Hypothyroidism
     Route: 065
  5. CALCIUM POLYSTYRENE SULFONATE [Concomitant]
     Active Substance: CALCIUM POLYSTYRENE SULFONATE
     Indication: Cardiac failure
     Dosage: 1 SACHET EVERY 12 HOURS
     Route: 048
  6. ASPIRIN [Concomitant]
     Active Substance: ASPIRIN
     Indication: Acute myocardial infarction
     Dosage: 1 TABLET AT LUNCH
     Dates: start: 20190627
  7. TRYPTIZOL [Concomitant]
     Active Substance: AMITRIPTYLINE HYDROCHLORIDE
     Indication: Insomnia
     Dosage: 1 TABLET EVERY DAY
     Route: 065
     Dates: start: 20180705
  8. CLOPIDOGREL [Concomitant]
     Active Substance: CLOPIDOGREL BISULFATE
     Indication: Acute myocardial infarction
     Dosage: 1 TABLET AT LUNCH
     Route: 065
  9. FUROSEMIDE [Concomitant]
     Active Substance: FUROSEMIDE
     Indication: Cardiac failure
     Route: 065
     Dates: start: 20190627
  10. BISOPROLOL [Concomitant]
     Active Substance: BISOPROLOL
     Dosage: 1 TABLET IN THE MORNING
     Route: 065
     Dates: start: 20190627
  11. ARANESP [Concomitant]
     Active Substance: DARBEPOETIN ALFA
     Indication: Anaemia
     Dosage: 1 PRE-FILLED SYRINGE EVERY 7 DAYS
     Route: 065
     Dates: start: 20190816
  12. LORAZEPAM [Concomitant]
     Active Substance: LORAZEPAM
     Indication: Insomnia
     Dosage: 1 TABLET EVERY DAY
     Route: 065
     Dates: start: 20181004
  13. CALCIFEDIOL [Concomitant]
     Active Substance: CALCIFEDIOL
     Dosage: 1 CAPSULE EVERY 30 DAYS
     Dates: start: 20200217
  14. FEBUXOSTAT [Concomitant]
     Active Substance: FEBUXOSTAT
     Indication: Hyperuricaemia
     Dosage: 1 TABLET EVERY 2 DAYS
     Route: 065
     Dates: start: 20200306
  15. URSOBILANE [Concomitant]
     Indication: Biliary cirrhosis
     Dosage: 1 CAPSULE EVERY 12 HOURS
     Route: 065
     Dates: start: 20191203
  16. FENTANYL [Concomitant]
     Active Substance: FENTANYL
     Indication: Spinal stenosis
     Dosage: 1 TRANSDERMAL PATCH EVERY 3 DAYS
     Route: 062
     Dates: start: 20200220
  17. ATORVASTATIN [Concomitant]
     Active Substance: ATORVASTATIN
     Indication: Hypercholesterolaemia
     Dosage: 1 TABLET EVERY DAY
     Route: 065
     Dates: start: 20180719
  18. NEUPRO [Concomitant]
     Active Substance: ROTIGOTINE
     Indication: Restless legs syndrome
     Dosage: 1MG/24 H TRANSDERMAL PATCH, 1 TRANSDERMAL PATCH EVERY DAY
     Route: 062
     Dates: start: 20170516
  19. CARVEDILOL [Concomitant]
     Active Substance: CARVEDILOL
     Indication: Cardiac failure
     Dosage: 1 TABLET EVERY 12 HOURS
     Route: 065
     Dates: start: 20200527
  20. LINAGLIPTIN [Concomitant]
     Active Substance: LINAGLIPTIN
     Indication: Diabetes mellitus
     Dosage: 1 TABLET EVERY DAY
     Route: 065

REACTIONS (4)
  - Hyperkalaemia [Fatal]
  - Creatinine renal clearance decreased [Fatal]
  - Chronic kidney disease [Fatal]
  - Urinary tract infection [Fatal]

NARRATIVE: CASE EVENT DATE: 20200728
